FAERS Safety Report 25793466 (Version 1)
Quarter: 2025Q3

REPORT INFORMATION
  Report Type: Report from Study
  Country: CO (occurrence: CO)
  Receive Date: 20250911
  Receipt Date: 20250911
  Transmission Date: 20251021
  Serious: Yes (Hospitalization)
  Sender: BIOGEN
  Company Number: CO-BIOGEN-2025BI01309107

PATIENT
  Age: 34 Year
  Sex: Female
  Weight: 69 kg

DRUGS (8)
  1. TYSABRI [Suspect]
     Active Substance: NATALIZUMAB
     Indication: Multiple sclerosis
     Route: 050
     Dates: start: 20210227, end: 20241106
  2. TYSABRI [Suspect]
     Active Substance: NATALIZUMAB
     Route: 050
     Dates: start: 202506
  3. VITAMIN D [Concomitant]
     Active Substance: VITAMIN D NOS
     Indication: Product used for unknown indication
     Route: 050
     Dates: start: 2023
  4. FOLIC ACID [Concomitant]
     Active Substance: FOLIC ACID
     Indication: Pregnancy
     Route: 050
     Dates: start: 202408, end: 202411
  5. ASPIRIN [Concomitant]
     Active Substance: ASPIRIN
     Indication: Pregnancy
     Route: 050
     Dates: start: 202411, end: 202505
  6. CALCIUM [Concomitant]
     Active Substance: CALCIUM
     Indication: Pregnancy
     Dosage: 600
     Route: 050
     Dates: start: 202411
  7. GESTAVIT [Concomitant]
     Indication: Pregnancy
     Route: 050
     Dates: start: 202411, end: 202504
  8. VITAMINS [Concomitant]
     Active Substance: VITAMINS
     Indication: Pregnancy
     Route: 050
     Dates: start: 202505

REACTIONS (3)
  - Caesarean section [Recovered/Resolved]
  - Premature delivery [Unknown]
  - Maternal exposure during pregnancy [Recovered/Resolved]

NARRATIVE: CASE EVENT DATE: 20241001
